FAERS Safety Report 21944875 (Version 1)
Quarter: 2023Q1

REPORT INFORMATION
  Report Type: Spontaneous
  Country: US (occurrence: None)
  Receive Date: 20230201
  Receipt Date: 20230201
  Transmission Date: 20230418
  Serious: Yes (Disabling, Other)
  Sender: FDA-Public Use
  Company Number: None

PATIENT
  Age: 90 Year
  Sex: Male
  Weight: 65.7 kg

DRUGS (1)
  1. ZENPEP [Suspect]
     Active Substance: PANCRELIPASE AMYLASE\PANCRELIPASE LIPASE\PANCRELIPASE PROTEASE
     Indication: Pancreatic carcinoma
     Dosage: OTHER QUANTITY : 3 CAPSULE(S);?OTHER FREQUENCY : 3  MEALS 1-3SNACKS;?
     Route: 048
     Dates: start: 20070130, end: 20230201

REACTIONS (4)
  - Gynaecomastia [None]
  - Muscle atrophy [None]
  - Product substitution issue [None]
  - Hernia [None]

NARRATIVE: CASE EVENT DATE: 20200101
